FAERS Safety Report 7656249-8 (Version None)
Quarter: 2011Q3

REPORT INFORMATION
  Report Type: 
  Country: None (occurrence: None)
  Receive Date: 20110729
  Receipt Date: 20110727
  Transmission Date: 20111222
  Serious: Yes (Death)
  Sender: FDA-Public Use
  Company Number: SP02959

PATIENT
  Age: 64 Year
  Sex: Male
  Weight: 68.0396 kg

DRUGS (5)
  1. ADVAIR DISKUS 100/50 [Concomitant]
  2. SINGULAIR [Concomitant]
  3. XIFAXAN [Suspect]
     Indication: HEPATIC ENCEPHALOPATHY
     Dosage: 1100 MG (550 MG, 2 IN 1 D), ORAL
     Route: 048
     Dates: start: 20100603
  4. SODIUM CHLORIDE [Concomitant]
  5. SPIRONOLACTONE [Concomitant]

REACTIONS (4)
  - EPISTAXIS [None]
  - HEPATIC ENCEPHALOPATHY [None]
  - HEPATIC FAILURE [None]
  - DYSGEUSIA [None]
